FAERS Safety Report 8482445-6 (Version None)
Quarter: 2012Q3

REPORT INFORMATION
  Report Type: 
  Country: None (occurrence: None)
  Receive Date: 20120702
  Receipt Date: 20120619
  Transmission Date: 20120928
  Serious: Yes (Other)
  Sender: FDA-Public Use
  Company Number: ZA-GLAXOSMITHKLINE-B0796181A

PATIENT
  Age: 48 Year

DRUGS (1)
  1. FLUTICASONE PROPIONATE [Suspect]
     Indication: CARDIAC ASTHMA
     Route: 055

REACTIONS (4)
  - GENERAL PHYSICAL CONDITION ABNORMAL [None]
  - DISCOMFORT [None]
  - PRODUCT QUALITY ISSUE [None]
  - PRODUCT COUNTERFEIT [None]
